FAERS Safety Report 7959597-7 (Version None)
Quarter: 2011Q4

REPORT INFORMATION
  Report Type: 
  Country: None (occurrence: None)
  Receive Date: 20111206
  Receipt Date: 20111129
  Transmission Date: 20120403
  Serious: Yes (Hospitalization)
  Sender: FDA-Public Use
  Company Number: FR-SANOFI-AVENTIS-2011SA078158

PATIENT
  Age: 69 Year
  Sex: Male

DRUGS (14)
  1. ALDACTONE [Suspect]
     Route: 048
     Dates: start: 20100904
  2. LASIX [Suspect]
     Route: 048
     Dates: start: 20110904, end: 20110908
  3. FONX [Concomitant]
     Route: 003
  4. CORDARONE [Concomitant]
     Route: 048
  5. ACETAMINOPHEN [Concomitant]
     Route: 048
  6. AMITRIPTYLINE HCL [Suspect]
     Route: 065
     Dates: end: 20100907
  7. CLONAZEPAM [Suspect]
     Route: 048
  8. MORPHINE SULFATE [Concomitant]
     Route: 048
  9. ZOLPIDEM [Suspect]
     Route: 048
  10. OXAZEPAM [Suspect]
     Route: 048
  11. POLYETHYLENE GLYCOL [Concomitant]
     Dosage: DOSE:1 UNIT(S)
     Route: 048
  12. DURAGESIC-100 [Suspect]
     Route: 003
  13. BISOPROLOL FUMARATE [Concomitant]
     Route: 048
  14. AUGMENTIN [Concomitant]
     Route: 048

REACTIONS (1)
  - CONFUSIONAL STATE [None]
